FAERS Safety Report 5472636-0 (Version None)
Quarter: 2007Q3

REPORT INFORMATION
  Report Type: 
  Country: None (occurrence: None)
  Receive Date: 20070926
  Receipt Date: 20070913
  Transmission Date: 20080115
  Serious: Yes (Death)
  Sender: FDA-Public Use
  Company Number: S07-CAN-05151-01

PATIENT
  Age: 73 Year
  Sex: Male

DRUGS (2)
  1. CELEXA [Suspect]
     Dosage: 20 MG QD PO
     Route: 048
  2. VENLAFAXINE XR (VENLAFAXINE) [Concomitant]

REACTIONS (6)
  - AGITATION [None]
  - ANXIETY [None]
  - COMPLETED SUICIDE [None]
  - DECREASED ACTIVITY [None]
  - DEPERSONALISATION [None]
  - TREMOR [None]
